FAERS Safety Report 9997298 (Version 1)
Quarter: 2014Q1

REPORT INFORMATION
  Report Type: Spontaneous
  Country: US (occurrence: US)
  Receive Date: 20140311
  Receipt Date: 20140311
  Transmission Date: 20141002
  Serious: No
  Sender: FDA-Public Use
  Company Number: US-GLAXOSMITHKLINE-A1031044A

PATIENT
  Age: 43 Year
  Sex: Female

DRUGS (1)
  1. NICORETTE MINT OTC 2MG [Suspect]
     Indication: EX-TOBACCO USER
     Dates: start: 20130629, end: 20130630

REACTIONS (5)
  - Oropharyngeal discomfort [Recovered/Resolved]
  - Pharyngeal oedema [Recovered/Resolved]
  - Dysphagia [Recovered/Resolved]
  - Hypersensitivity [Recovered/Resolved]
  - Nausea [Recovered/Resolved]
